FAERS Safety Report 12559632 (Version 3)
Quarter: 2016Q3

REPORT INFORMATION
  Report Type: Spontaneous
  Country: US (occurrence: US)
  Receive Date: 20160715
  Receipt Date: 20160808
  Transmission Date: 20161109
  Serious: No
  Sender: FDA-Public Use
  Company Number: US-BEH-2016061324

PATIENT
  Sex: Female
  Weight: 21 kg

DRUGS (10)
  1. HIZENTRA [Suspect]
     Active Substance: HUMAN IMMUNOGLOBULIN G
     Route: 058
  2. PROBIOTIC [Concomitant]
     Active Substance: PROBIOTICS NOS
  3. HIZENTRA [Suspect]
     Active Substance: HUMAN IMMUNOGLOBULIN G
     Route: 058
  4. HIZENTRA [Suspect]
     Active Substance: HUMAN IMMUNOGLOBULIN G
     Indication: IMMUNODEFICIENCY COMMON VARIABLE
     Route: 058
  5. ACETAMINOPHEN. [Concomitant]
     Active Substance: ACETAMINOPHEN
  6. MULTIVITAMIN [Concomitant]
     Active Substance: VITAMINS
  7. EPIPEN JR [Concomitant]
     Active Substance: EPINEPHRINE
  8. TRILEPTAL [Concomitant]
     Active Substance: OXCARBAZEPINE
  9. DIPHENHYDRAMINE. [Concomitant]
     Active Substance: DIPHENHYDRAMINE
  10. L-M-X [Concomitant]

REACTIONS (1)
  - Device connection issue [Unknown]
